FAERS Safety Report 13705672 (Version 1)
Quarter: 2017Q2

REPORT INFORMATION
  Report Type: Report from Study
  Country: US (occurrence: US)
  Receive Date: 20170630
  Receipt Date: 20170630
  Transmission Date: 20170830
  Serious: Yes (Hospitalization)
  Sender: FDA-Public Use
  Company Number: US-JNJFOC-20170627075

PATIENT
  Age: 81 Year
  Sex: Female

DRUGS (4)
  1. IMBRUVICA [Suspect]
     Active Substance: IBRUTINIB
     Indication: AMYLOIDOSIS
     Route: 048
     Dates: start: 201706
  2. IMBRUVICA [Suspect]
     Active Substance: IBRUTINIB
     Indication: AMYLOIDOSIS
     Route: 048
     Dates: start: 20170611
  3. IMBRUVICA [Suspect]
     Active Substance: IBRUTINIB
     Indication: AMYLOIDOSIS
     Route: 048
     Dates: start: 2016
  4. IMBRUVICA [Suspect]
     Active Substance: IBRUTINIB
     Indication: AMYLOIDOSIS
     Route: 048

REACTIONS (8)
  - Myalgia [Not Recovered/Not Resolved]
  - Head injury [Not Recovered/Not Resolved]
  - Loss of consciousness [Not Recovered/Not Resolved]
  - Product use in unapproved indication [Unknown]
  - Vomiting [Unknown]
  - Off label use [Unknown]
  - Fall [Not Recovered/Not Resolved]
  - Back pain [Not Recovered/Not Resolved]

NARRATIVE: CASE EVENT DATE: 2016
